FAERS Safety Report 8370340-2 (Version None)
Quarter: 2012Q2

REPORT INFORMATION
  Report Type: 
  Country: None (occurrence: None)
  Receive Date: 20120518
  Receipt Date: 20120229
  Transmission Date: 20120825
  Serious: No
  Sender: FDA-Public Use
  Company Number: US-ASTRAZENECA-2012SE15689

PATIENT
  Sex: Female

DRUGS (2)
  1. PRILOSEC OTC [Suspect]
     Indication: DYSPEPSIA
     Dosage: 1 TABLET, 4-6 TIMES A DAY
     Route: 048
     Dates: start: 20120218
  2. PRILOSEC OTC [Suspect]
     Indication: CHEST PAIN
     Dosage: 1 TABLET, 4-6 TIMES A DAY
     Route: 048
     Dates: start: 20120218

REACTIONS (3)
  - DRUG ADMINISTRATION ERROR [None]
  - CHEST PAIN [None]
  - DRUG INEFFECTIVE [None]
